FAERS Safety Report 22245657 (Version 2)
Quarter: 2023Q2

REPORT INFORMATION
  Report Type: Spontaneous
  Country: US (occurrence: US)
  Receive Date: 20230424
  Receipt Date: 20230426
  Transmission Date: 20230722
  Serious: No
  Sender: FDA-Public Use
  Company Number: US-009507513-2303USA010293

PATIENT
  Sex: Female
  Weight: 72.7 kg

DRUGS (15)
  1. KEYTRUDA [Suspect]
     Active Substance: PEMBROLIZUMAB
     Indication: Ovarian cancer
     Dosage: 200 MG, EVERY 21 DAYS (Q3W)
     Route: 042
     Dates: start: 20230306, end: 20230328
  2. MVASI [Concomitant]
     Active Substance: BEVACIZUMAB-AWWB
     Dosage: UNK
     Dates: start: 20211109, end: 20211109
  3. MVASI [Concomitant]
     Active Substance: BEVACIZUMAB-AWWB
     Dosage: UNK
     Dates: start: 20230306
  4. TYLENOL [Concomitant]
     Active Substance: ACETAMINOPHEN
  5. ALBUTEROL [Concomitant]
     Active Substance: ALBUTEROL
  6. LASIX [Concomitant]
     Active Substance: FUROSEMIDE
  7. DULOXETINE [Concomitant]
     Active Substance: DULOXETINE
  8. FLUTICASONE [Concomitant]
     Active Substance: FLUTICASONE
     Route: 045
  9. FLUTICASONE [Concomitant]
     Active Substance: FLUTICASONE
     Dosage: UNK
  10. GABAPENTIN [Concomitant]
     Active Substance: GABAPENTIN
  11. LIDOCAINE [Concomitant]
     Active Substance: LIDOCAINE
  12. LORAZEPAM [Concomitant]
     Active Substance: LORAZEPAM
  13. ZOFRAN [Concomitant]
     Active Substance: ONDANSETRON HYDROCHLORIDE
  14. OXYCODONE [Concomitant]
     Active Substance: OXYCODONE
  15. MIRALAX [Concomitant]
     Active Substance: POLYETHYLENE GLYCOL 3350

REACTIONS (3)
  - Adverse event [Unknown]
  - Hospice care [Unknown]
  - Product use in unapproved indication [Unknown]

NARRATIVE: CASE EVENT DATE: 20230101
